FAERS Safety Report 14668028 (Version 1)
Quarter: 2018Q1

REPORT INFORMATION
  Report Type: Other
  Country: US (occurrence: US)
  Receive Date: 20180322
  Receipt Date: 20180322
  Transmission Date: 20180509
  Serious: Yes (Other)
  Sender: FDA-Public Use
  Company Number: US-ORCHID HEALTHCARE-2044309

PATIENT
  Age: 62 Year
  Sex: Female

DRUGS (1)
  1. VENLAFAXINE HYDROCHLORIDE. [Suspect]
     Active Substance: VENLAFAXINE HYDROCHLORIDE
     Indication: MAJOR DEPRESSION
     Route: 065

REACTIONS (3)
  - Rectal ulcer [Recovering/Resolving]
  - Gastritis [Recovering/Resolving]
  - Colitis microscopic [Recovering/Resolving]
